FAERS Safety Report 21471396 (Version 1)
Quarter: 2022Q4

REPORT INFORMATION
  Report Type: Spontaneous
  Country: US (occurrence: None)
  Receive Date: 20221017
  Receipt Date: 20221017
  Transmission Date: 20230112
  Serious: Yes (Life-Threatening, Hospitalization)
  Sender: FDA-Public Use
  Company Number: None

PATIENT
  Age: 31 Year
  Sex: Female
  Weight: 58.5 kg

DRUGS (2)
  1. TESTOSTERONE CYPIONATE [Suspect]
     Active Substance: TESTOSTERONE CYPIONATE
     Indication: Hormone therapy
     Dosage: OTHER FREQUENCY : ONCE A WEEK;?
     Route: 030
  2. VITAMIN D [Concomitant]
     Active Substance: VITAMIN D NOS

REACTIONS (13)
  - Recalled product administered [None]
  - Rash [None]
  - Adverse drug reaction [None]
  - Stress [None]
  - Depression [None]
  - Immune system disorder [None]
  - Illness [None]
  - Scar [None]
  - Product quality issue [None]
  - Emotional distress [None]
  - Skin discolouration [None]
  - Pain [None]
  - Erythema [None]

NARRATIVE: CASE EVENT DATE: 20211115
